FAERS Safety Report 4313818-0 (Version None)
Quarter: 2004Q1

REPORT INFORMATION
  Report Type: 
  Country: None (occurrence: None)
  Receive Date: 20040305
  Receipt Date: 20040223
  Transmission Date: 20041129
  Serious: Yes (Other)
  Sender: FDA-Public Use
  Company Number: DE-SHR-04-020999

PATIENT
  Sex: Female

DRUGS (1)
  1. FLUDARA [Suspect]
     Indication: CHRONIC LYMPHOCYTIC LEUKAEMIA
     Dosage: CYCLE X 5D, INTRAVENOUS
     Route: 042

REACTIONS (3)
  - MUSCULAR WEAKNESS [None]
  - MYOPATHY [None]
  - PARESIS [None]
